FAERS Safety Report 15198546 (Version 1)
Quarter: 2018Q3

REPORT INFORMATION
  Report Type: Spontaneous
  Country: US (occurrence: US)
  Receive Date: 20180627
  Receipt Date: 20180627
  Transmission Date: 20181010
  Serious: Yes (Hospitalization)
  Sender: FDA-Public Use
  Company Number: None

PATIENT
  Age: 76 Year
  Sex: Male

DRUGS (16)
  1. POTASSIUM [Concomitant]
     Active Substance: POTASSIUM
  2. LUTEIN [Concomitant]
     Active Substance: LUTEIN
  3. VOTRIENT [Suspect]
     Active Substance: PAZOPANIB HYDROCHLORIDE
     Indication: NEOPLASM MALIGNANT
     Route: 048
     Dates: start: 20170418
  4. ALODIPINE BESYLATE [Concomitant]
  5. LIOTHYRONOINE [Concomitant]
  6. ASPIRIN. [Concomitant]
     Active Substance: ASPIRIN
  7. TAMSULOSIN [Concomitant]
     Active Substance: TAMSULOSIN
  8. TESTOSTERONE. [Concomitant]
     Active Substance: TESTOSTERONE
  9. LEVOTHYROXINE. [Concomitant]
     Active Substance: LEVOTHYROXINE
  10. OMEGA3 [Concomitant]
  11. JANUVIA [Concomitant]
     Active Substance: SITAGLIPTIN PHOSPHATE
  12. XGEVA [Concomitant]
     Active Substance: DENOSUMAB
  13. COQ 10 [Concomitant]
     Active Substance: UBIDECARENONE
  14. VITAMIN C [Concomitant]
     Active Substance: ASCORBIC ACID
  15. PHENTERMINE. [Concomitant]
     Active Substance: PHENTERMINE
  16. FINASTERIDE. [Concomitant]
     Active Substance: FINASTERIDE

REACTIONS (1)
  - Nerve compression [None]

NARRATIVE: CASE EVENT DATE: 20180624
